FAERS Safety Report 7041148-5 (Version None)
Quarter: 2010Q4

REPORT INFORMATION
  Report Type: 
  Country: None (occurrence: None)
  Receive Date: 20101013
  Receipt Date: 20101004
  Transmission Date: 20110411
  Serious: Yes (Death)
  Sender: FDA-Public Use
  Company Number: FR-SANOFI-AVENTIS-2010SA059173

PATIENT
  Age: 69 Year
  Sex: Male

DRUGS (2)
  1. HEPARINE CHOAY [Suspect]
     Indication: PROPHYLAXIS
     Route: 042
     Dates: start: 20090414, end: 20090430
  2. LOVENOX [Suspect]
     Indication: PROPHYLAXIS
     Route: 042
     Dates: start: 20090401, end: 20090430

REACTIONS (2)
  - AORTIC THROMBOSIS [None]
  - HEPARIN-INDUCED THROMBOCYTOPENIA [None]
